FAERS Safety Report 10874385 (Version 1)
Quarter: 2015Q1

REPORT INFORMATION
  Report Type: Spontaneous
  Country: FR (occurrence: FR)
  Receive Date: 20150227
  Receipt Date: 20150227
  Transmission Date: 20150721
  Serious: Yes (Other)
  Sender: FDA-Public Use
  Company Number: FR-BAXTER-2015BAX009649

PATIENT
  Age: 77 Year
  Sex: Female

DRUGS (1)
  1. GLUCOSE A 5 POUR CENT BAXTER, SOLUTION POUR PERFUSION [Suspect]
     Active Substance: DEXTROSE
     Indication: POSITRON EMISSION TOMOGRAM
     Route: 042
     Dates: start: 20150122, end: 20150122

REACTIONS (2)
  - Wrong drug administered [Recovered/Resolved]
  - Positron emission tomogram abnormal [Recovered/Resolved]

NARRATIVE: CASE EVENT DATE: 20150122
